FAERS Safety Report 8988399 (Version 1)
Quarter: 2012Q4

REPORT INFORMATION
  Report Type: Spontaneous
  Country: US (occurrence: None)
  Receive Date: 20121221
  Receipt Date: 20121221
  Transmission Date: 20130627
  Serious: Yes (Life-Threatening, Other)
  Sender: FDA-Public Use
  Company Number: None

PATIENT
  Age: 43 Year
  Sex: Female

DRUGS (8)
  1. PAROXETINE HCL [Suspect]
     Route: 048
     Dates: start: 20121003, end: 201211
  2. EFFEXOR XR [Suspect]
     Route: 048
     Dates: start: 20070908, end: 201103
  3. LEXAPRO [Concomitant]
  4. CELEXA [Concomitant]
  5. PAXIL [Concomitant]
  6. PAXIL [Concomitant]
  7. PROZAC [Concomitant]
  8. EFFEXOR [Concomitant]

REACTIONS (4)
  - Therapeutic response decreased [None]
  - Asthenia [None]
  - Suicidal ideation [None]
  - Anger [None]
